FAERS Safety Report 6551159-1 (Version None)
Quarter: 2010Q1

REPORT INFORMATION
  Report Type: 
  Country: None (occurrence: None)
  Receive Date: 20100121
  Receipt Date: 20100107
  Transmission Date: 20100710
  Serious: Yes (Hospitalization, Other)
  Sender: FDA-Public Use
  Company Number: 2010AP000058

PATIENT
  Age: 9 Year
  Sex: Male

DRUGS (7)
  1. LAMOTRIGINE [Suspect]
     Indication: EPILEPSY
     Dosage: 2 MG/KG; QD
  2. CLOBAZAM (CLOBAZAM) [Suspect]
     Indication: EPILEPSY
     Dosage: 1.5 MG/KG; QD
  3. ETHOSUXIMIDE [Suspect]
     Indication: EPILEPSY
     Dosage: 33 MG/KG; QD
  4. VALPROATE SODIUM [Suspect]
     Indication: EPILEPSY
     Dosage: 33 MG/KG; QD
  5. LEVETIRACETAM [Suspect]
     Indication: EPILEPSY
  6. PHENYTOIN [Concomitant]
  7. PREDNISOLONE [Concomitant]

REACTIONS (24)
  - ALANINE AMINOTRANSFERASE INCREASED [None]
  - AMMONIA INCREASED [None]
  - ASPARTATE AMINOTRANSFERASE INCREASED [None]
  - BLISTER [None]
  - BLOOD BILIRUBIN INCREASED [None]
  - BLOOD SODIUM DECREASED [None]
  - BRADYCARDIA [None]
  - BRAIN STEM SYNDROME [None]
  - CARNITINE DECREASED [None]
  - COMA [None]
  - CSF PRESSURE DECREASED [None]
  - CSF PROTEIN INCREASED [None]
  - DEPRESSED LEVEL OF CONSCIOUSNESS [None]
  - GAMMA-GLUTAMYLTRANSFERASE INCREASED [None]
  - GENERALISED OEDEMA [None]
  - HEPATIC FUNCTION ABNORMAL [None]
  - HYPOTENSION [None]
  - HYPOXIA [None]
  - KLEBSIELLA INFECTION [None]
  - LETHARGY [None]
  - LOWER RESPIRATORY TRACT INFECTION [None]
  - NECROSIS [None]
  - OCULOCEPHALOGYRIC REFLEX ABSENT [None]
  - SWEAT GLAND DISORDER [None]
